FAERS Safety Report 10885810 (Version 1)
Quarter: 2015Q1

REPORT INFORMATION
  Report Type: Spontaneous
  Country: US (occurrence: None)
  Receive Date: 20150227
  Receipt Date: 20150227
  Transmission Date: 20150721
  Serious: Yes (Hospitalization)
  Sender: FDA-Public Use
  Company Number: None

PATIENT
  Age: 54 Year
  Sex: Female
  Weight: 131.1 kg

DRUGS (3)
  1. BENAZEPRIL [Suspect]
     Active Substance: BENAZEPRIL\BENAZEPRIL HYDROCHLORIDE
     Indication: HYPERTENSION
     Route: 048
     Dates: start: 20110322, end: 20140902
  2. NIFEDIPINE. [Suspect]
     Active Substance: NIFEDIPINE
     Indication: HYPERTENSION
     Route: 048
     Dates: start: 20140806
  3. NIFEDIPINE. [Suspect]
     Active Substance: NIFEDIPINE
     Indication: LEFT VENTRICULAR DYSFUNCTION
     Route: 048
     Dates: start: 20140806

REACTIONS (6)
  - Throat tightness [None]
  - Dysphagia [None]
  - Dysphonia [None]
  - Choking [None]
  - Angioedema [None]
  - Pharyngeal oedema [None]

NARRATIVE: CASE EVENT DATE: 20140902
